FAERS Safety Report 4537392-9 (Version None)
Quarter: 2004Q4

REPORT INFORMATION
  Report Type: 
  Country: None (occurrence: None)
  Receive Date: 20041223
  Receipt Date: 20041122
  Transmission Date: 20050328
  Serious: Yes (Hospitalization)
  Sender: FDA-Public Use
  Company Number: US-ABBOTT-04P-163-0281753-00

PATIENT
  Sex: Female
  Weight: 65.83 kg

DRUGS (18)
  1. DEPAKOTE [Suspect]
     Indication: SUICIDE ATTEMPT
     Route: 048
     Dates: start: 20041021, end: 20041021
  2. DEPAKOTE [Suspect]
     Indication: CONVULSION
     Dates: start: 20041030
  3. DEPAKOTE [Suspect]
     Indication: CONVERSION DISORDER
  4. LEXAPRO [Suspect]
     Indication: SUICIDE ATTEMPT
     Route: 048
     Dates: start: 20041021, end: 20041021
  5. LEXAPRO [Suspect]
     Indication: DEPRESSION
     Route: 048
     Dates: start: 20040924, end: 20041001
  6. CLOPIDOGREL BISULFATE [Suspect]
     Indication: SUICIDE ATTEMPT
     Route: 048
     Dates: start: 20041021, end: 20041021
  7. CLOPIDOGREL BISULFATE [Suspect]
     Indication: CHEST PAIN
     Route: 048
     Dates: start: 20020101, end: 20041021
  8. CLOPIDOGREL BISULFATE [Suspect]
     Indication: ISCHAEMIC STROKE
     Dates: start: 20041001
  9. ZOLPIDEM TARTRATE [Suspect]
     Indication: SUICIDE ATTEMPT
     Route: 048
     Dates: start: 20041021, end: 20041021
  10. ZOLPIDEM TARTRATE [Suspect]
     Indication: INSOMNIA
  11. ALPRAZOLAM [Suspect]
     Indication: SUICIDE ATTEMPT
     Route: 048
     Dates: start: 20041021, end: 20041021
  12. ALPRAZOLAM [Suspect]
     Indication: DRUG USE FOR UNKNOWN INDICATION
     Dates: end: 20041001
  13. CLONAZEPAM [Suspect]
     Indication: SUICIDE ATTEMPT
     Route: 048
     Dates: start: 20041021, end: 20041021
  14. CLONAZEPAM [Suspect]
     Indication: DEPRESSION
     Dates: start: 20040924, end: 20041001
  15. PHENERGAN [Suspect]
     Indication: SUICIDE ATTEMPT
     Dates: start: 20041021, end: 20041021
  16. ACETYLSALICYLIC ACID [Concomitant]
     Indication: DRUG USE FOR UNKNOWN INDICATION
     Route: 048
  17. DIHYDROERGOTAMINE MESYLATE [Concomitant]
     Indication: DRUG USE FOR UNKNOWN INDICATION
     Dates: start: 20030101
  18. PREDNISONE TAB [Concomitant]
     Indication: DRUG USE FOR UNKNOWN INDICATION

REACTIONS (11)
  - ALANINE AMINOTRANSFERASE INCREASED [None]
  - ASPARTATE AMINOTRANSFERASE INCREASED [None]
  - CEREBROVASCULAR ACCIDENT [None]
  - DEPRESSION SUICIDAL [None]
  - ENCEPHALOPATHY [None]
  - HYPERAMMONAEMIA [None]
  - HYPOTENSION [None]
  - LETHARGY [None]
  - LOSS OF CONSCIOUSNESS [None]
  - MULTIPLE DRUG OVERDOSE INTENTIONAL [None]
  - PNEUMONIA HAEMOPHILUS [None]
